FAERS Safety Report 6974549-1 (Version None)
Quarter: 2010Q3

REPORT INFORMATION
  Report Type: 
  Country: None (occurrence: None)
  Receive Date: 20100909
  Receipt Date: 20080806
  Transmission Date: 20110219
  Serious: No
  Sender: FDA-Public Use
  Company Number: US-WYE-H05463708

PATIENT
  Age: 58 Year
  Sex: Male
  Weight: 77.18 kg

DRUGS (5)
  1. PROTONIX [Suspect]
     Indication: GASTROOESOPHAGEAL REFLUX DISEASE
     Route: 048
     Dates: start: 20080201, end: 20080401
  2. METHOCARBAMOL [Concomitant]
  3. CENTRUM SILVER [Concomitant]
  4. IBUPROFEN [Concomitant]
  5. ASCORBIC ACID [Concomitant]

REACTIONS (1)
  - OSTEOPOROSIS [None]
